FAERS Safety Report 22200463 (Version 1)
Quarter: 2023Q2

REPORT INFORMATION
  Report Type: Report from Study
  Country: US (occurrence: None)
  Receive Date: 20230412
  Receipt Date: 20230412
  Transmission Date: 20230721
  Serious: Yes (Hospitalization, Other)
  Sender: FDA-Public Use
  Company Number: US-ROCHE-3319799

PATIENT
  Age: 79 Year
  Sex: Male
  Weight: 77.7 kg

DRUGS (5)
  1. ATEZOLIZUMAB [Suspect]
     Active Substance: ATEZOLIZUMAB
     Indication: Bladder cancer
     Dosage: 1200 MG IV ON DAY 1, CYCLE = 21 DAYS (MAX = 9 CYCLES)
     Route: 042
     Dates: start: 20220321
  2. CISPLATIN [Suspect]
     Active Substance: CISPLATIN
     Indication: Bladder cancer
     Dosage: 35 MG/M2 IV WEEKLY FOR SIX WEEKS, CYCLE = 21 DAYS (MAX = 9 CYCLES)
     Route: 042
     Dates: start: 20220425
  3. GEMCITABINE HYDROCHLORIDE [Suspect]
     Active Substance: GEMCITABINE HYDROCHLORIDE
     Indication: Bladder cancer
     Dosage: 27 MG/M2 IV TWICE WEEKLY FOR SIX WEEKS
     Route: 042
  4. FLUOROURACIL [Suspect]
     Active Substance: FLUOROURACIL
     Indication: Bladder cancer
     Dosage: 500 MG/M2 IV GIVEN ON SAME DAYS AS DOSES 1-5 AND 16-20 OF RT
     Route: 042
  5. MITOMYCIN [Suspect]
     Active Substance: MITOMYCIN
     Indication: Bladder cancer
     Dosage: 12 MG/M2 IV GIVEN ON SAME DAY AS DOSE 1 OF RT
     Route: 042

REACTIONS (5)
  - Lymphocyte count decreased [Recovered/Resolved]
  - Blood creatinine increased [Recovered/Resolved]
  - Sepsis [Recovered/Resolved]
  - White blood cell count decreased [Recovered/Resolved]
  - Kidney infection [Unknown]

NARRATIVE: CASE EVENT DATE: 20220429
